FAERS Safety Report 18587489 (Version 2)
Quarter: 2021Q1

REPORT INFORMATION
  Report Type: Spontaneous
  Country: JP (occurrence: JP)
  Receive Date: 20201207
  Receipt Date: 20210125
  Transmission Date: 20210419
  Serious: Yes (Other)
  Sender: FDA-Public Use
  Company Number: JP-DSJP-DSJ-2020-137279

PATIENT
  Age: 52 Year
  Sex: Female
  Weight: 42 kg

DRUGS (1)
  1. ENHERTU [Suspect]
     Active Substance: FAM-TRASTUZUMAB DERUXTECAN-NXKI
     Indication: BREAST CANCER
     Dosage: 180 MG, ONCE EVERY 3 WK, 2020/6/4, 6/25, 7/16, 8/6, 8/27, 9/17, 10/8, 10/29, 11/19, 12/10, 2021/1/7
     Route: 042
     Dates: start: 20200604, end: 20210107

REACTIONS (2)
  - Off label use [Unknown]
  - Pulmonary hypertension [Recovering/Resolving]

NARRATIVE: CASE EVENT DATE: 20200604
